FAERS Safety Report 7529770-0 (Version None)
Quarter: 2011Q2

REPORT INFORMATION
  Report Type: 
  Country: None (occurrence: None)
  Receive Date: 20110607
  Receipt Date: 20110523
  Transmission Date: 20111010
  Serious: Yes (Other)
  Sender: FDA-Public Use
  Company Number: CH-WATSON-2011-06897

PATIENT
  Age: 72 Year
  Sex: Male

DRUGS (3)
  1. BUPROPION HCL [Suspect]
     Indication: DEPRESSION
     Dosage: 300 MG, UNK
  2. LITHIUM CARBONATE [Suspect]
     Indication: DEPRESSION
     Dosage: UNK
  3. TRAZODONE HYDROCHLORIDE [Suspect]
     Indication: DEPRESSION
     Dosage: 300 MG, UNK

REACTIONS (1)
  - METABOLIC ENCEPHALOPATHY [None]
